FAERS Safety Report 6674242-9 (Version None)
Quarter: 2010Q1

REPORT INFORMATION
  Report Type: 
  Country: None (occurrence: None)
  Receive Date: 20100329
  Receipt Date: 20090402
  Transmission Date: 20100710
  Serious: Yes (Hospitalization)
  Sender: FDA-Public Use
  Company Number: 2009178162

PATIENT
  Sex: Male

DRUGS (1)
  1. GEODON [Suspect]

REACTIONS (1)
  - CHEST PAIN [None]
